FAERS Safety Report 13946627 (Version 2)
Quarter: 2017Q4

REPORT INFORMATION
  Report Type: Spontaneous
  Country: US (occurrence: US)
  Receive Date: 20170907
  Receipt Date: 20171106
  Transmission Date: 20180320
  Serious: Yes (Other)
  Sender: FDA-Public Use
  Company Number: US-TEVA-803152USA

PATIENT
  Age: 44 Year
  Sex: Female
  Weight: 57.57 kg

DRUGS (4)
  1. COPAXONE [Suspect]
     Active Substance: GLATIRAMER ACETATE
     Indication: MULTIPLE SCLEROSIS
     Route: 058
  2. LUPRON DEPOT [Concomitant]
     Active Substance: LEUPROLIDE ACETATE
     Dosage: UNKNOWN FORM STRENGTH
  3. VITAMIN D3 [Concomitant]
     Active Substance: CHOLECALCIFEROL
     Dosage: UNKNOWN FORM STRENGTH
  4. XANAX [Concomitant]
     Active Substance: ALPRAZOLAM

REACTIONS (20)
  - Diarrhoea [Unknown]
  - Temperature intolerance [Unknown]
  - Weight decreased [Unknown]
  - Constipation [Unknown]
  - Balance disorder [Unknown]
  - Anxiety disorder [Unknown]
  - Multiple sclerosis [Unknown]
  - Multiple sclerosis relapse [Unknown]
  - Weight increased [Unknown]
  - Coordination abnormal [Unknown]
  - Hypoaesthesia [Unknown]
  - Fatigue [Unknown]
  - Hot flush [Unknown]
  - Tremor [Unknown]
  - Night sweats [Unknown]
  - Injection site pain [Recovered/Resolved]
  - Hemiparesis [Unknown]
  - Malaise [Unknown]
  - Pollakiuria [Unknown]
  - Gait disturbance [Unknown]

NARRATIVE: CASE EVENT DATE: 201506
